FAERS Safety Report 15134418 (Version 2)
Quarter: 2019Q2

REPORT INFORMATION
  Report Type: Spontaneous
  Country: CN (occurrence: CN)
  Receive Date: 20180712
  Receipt Date: 20190618
  Transmission Date: 20190711
  Serious: Yes (Other)
  Sender: FDA-Public Use
  Company Number: CN-PFIZER INC-2018272398

PATIENT
  Age: 72 Year
  Sex: Male

DRUGS (4)
  1. MEPEM [Suspect]
     Active Substance: MEROPENEM
     Indication: INFECTION
     Dosage: 1 G, 4X/DAY (Q6H)
     Route: 041
     Dates: start: 20180512, end: 20180514
  2. NEXIUM [Concomitant]
     Active Substance: ESOMEPRAZOLE MAGNESIUM
     Indication: INFECTION
     Dosage: 40 MG, 2X/DAY
     Route: 041
     Dates: start: 20180513, end: 20180514
  3. VIAGRA [Suspect]
     Active Substance: SILDENAFIL CITRATE
     Indication: INFECTION
     Dosage: 100 MG, 1X/DAY
     Route: 045
     Dates: start: 20180504, end: 20180514
  4. ZYVOX [Concomitant]
     Active Substance: LINEZOLID
     Indication: INFECTION
     Dosage: 600 MG, 2X/DAY
     Route: 041
     Dates: start: 20180510, end: 20180514

REACTIONS (3)
  - Oedema [Not Recovered/Not Resolved]
  - Airway peak pressure increased [Not Recovered/Not Resolved]
  - Flushing [Not Recovered/Not Resolved]

NARRATIVE: CASE EVENT DATE: 20180514
